FAERS Safety Report 15723445 (Version 3)
Quarter: 2019Q2

REPORT INFORMATION
  Report Type: Spontaneous
  Country: US (occurrence: US)
  Receive Date: 20181214
  Receipt Date: 20190606
  Transmission Date: 20190711
  Serious: Yes (Other)
  Sender: FDA-Public Use
  Company Number: US-SA-2018SA340163

PATIENT
  Age: 54 Year
  Sex: Female

DRUGS (1)
  1. DUPIXENT [Suspect]
     Active Substance: DUPILUMAB
     Indication: DERMATITIS ATOPIC
     Dosage: 300 MG, QOW
     Route: 058
     Dates: start: 20180424

REACTIONS (6)
  - Restlessness [Recovered/Resolved]
  - Choking [Recovered/Resolved]
  - Malaise [Recovered/Resolved]
  - Hypersensitivity [Recovering/Resolving]
  - Night sweats [Recovered/Resolved]
  - Glossoptosis [Recovered/Resolved]

NARRATIVE: CASE EVENT DATE: 20180712
